FAERS Safety Report 8375006-0 (Version None)
Quarter: 2012Q2

REPORT INFORMATION
  Report Type: 
  Country: None (occurrence: None)
  Receive Date: 20120521
  Receipt Date: 20120514
  Transmission Date: 20120825
  Serious: Yes (Other)
  Sender: FDA-Public Use
  Company Number: DE-ROCHE-1049623

PATIENT
  Sex: Male
  Weight: 71.1 kg

DRUGS (1)
  1. MIRCERA [Suspect]
     Indication: NEPHROGENIC ANAEMIA
     Route: 042

REACTIONS (2)
  - URINARY TRACT INFECTION [None]
  - HAEMOGLOBIN DECREASED [None]
